FAERS Safety Report 10024149 (Version 2)
Quarter: 2014Q2

REPORT INFORMATION
  Report Type: Spontaneous
  Country: US (occurrence: US)
  Receive Date: 20140320
  Receipt Date: 20140425
  Transmission Date: 20141212
  Serious: No
  Sender: FDA-Public Use
  Company Number: US-PFIZER INC-2014076597

PATIENT
  Age: 66 Year
  Sex: Male
  Weight: 92.97 kg

DRUGS (2)
  1. ADVIL PM [Suspect]
     Indication: PAIN
     Dosage: TWO CAPLETS, DAILY
     Dates: start: 201403, end: 20140310
  2. ADVIL PM [Suspect]
     Indication: SLEEP DISORDER

REACTIONS (1)
  - Tremor [Recovered/Resolved]
